FAERS Safety Report 6902121-8 (Version None)
Quarter: 2010Q3

REPORT INFORMATION
  Report Type: 
  Country: None (occurrence: None)
  Receive Date: 20100803
  Receipt Date: 20080417
  Transmission Date: 20110219
  Serious: No
  Sender: FDA-Public Use
  Company Number: US-PFIZER INC-2008031986

PATIENT
  Sex: Female

DRUGS (7)
  1. LYRICA [Interacting]
     Indication: FIBROMYALGIA
     Dates: start: 20071101
  2. GABAPENTIN [Suspect]
     Indication: FIBROMYALGIA
     Dates: start: 20060101, end: 20071101
  3. ALL OTHER THERAPEUTIC PRODUCTS [Interacting]
  4. OXYCODONE [Concomitant]
  5. EFFEXOR XR [Concomitant]
  6. PROVIGIL [Concomitant]
  7. MORPHINE SULFATE [Concomitant]

REACTIONS (6)
  - ARTHRALGIA [None]
  - ASTHENIA [None]
  - DRUG INEFFECTIVE [None]
  - DRUG INTERACTION [None]
  - DRUG SCREEN POSITIVE [None]
  - PRODUCT QUALITY ISSUE [None]
